FAERS Safety Report 5835146-4 (Version None)
Quarter: 2008Q3

REPORT INFORMATION
  Report Type: 
  Country: None (occurrence: None)
  Receive Date: 20080805
  Receipt Date: 20080805
  Transmission Date: 20090109
  Serious: Yes (Life-Threatening, Hospitalization, Disabling)
  Sender: FDA-Public Use
  Company Number: None

PATIENT
  Age: 96 Year
  Sex: Female

DRUGS (2)
  1. VENOFER [Suspect]
     Indication: APLASTIC ANAEMIA
     Dosage: 300 MG ONCE IV DRIP
     Route: 041
     Dates: start: 20080723, end: 20080723
  2. VENOFER [Suspect]
     Indication: APLASTIC ANAEMIA
     Dosage: 300 MG ONCE IV DRIP
     Route: 041
     Dates: start: 20080731, end: 20080731

REACTIONS (4)
  - HYPOTENSION [None]
  - LOSS OF CONSCIOUSNESS [None]
  - RESPIRATORY DISORDER [None]
  - URTICARIA [None]
